FAERS Safety Report 11800812 (Version 1)
Quarter: 2015Q4

REPORT INFORMATION
  Report Type: Spontaneous
  Country: IT (occurrence: IT)
  Receive Date: 20151204
  Receipt Date: 20151204
  Transmission Date: 20160305
  Serious: Yes (Hospitalization)
  Sender: FDA-Public Use
  Company Number: IT-ACCORD-035846

PATIENT
  Age: 62 Year
  Sex: Female
  Weight: 77 kg

DRUGS (9)
  1. NOLITERAX [Concomitant]
  2. PANTOPRAZOLE [Concomitant]
     Active Substance: PANTOPRAZOLE SODIUM
  3. TENORMIN [Concomitant]
     Active Substance: ATENOLOL
     Dosage: STRENGTH 100 MG
  4. EZETROL [Concomitant]
     Active Substance: EZETIMIBE
  5. IRINOTECAN [Concomitant]
     Active Substance: IRINOTECAN
  6. CARDIOASPIRIN [Concomitant]
     Active Substance: ASPIRIN
  7. FLUOROURACIL ACCORD [Suspect]
     Active Substance: FLUOROURACIL
     Indication: COLON CANCER
     Route: 042
     Dates: start: 20151014, end: 20151016
  8. ATORVASTATIN [Concomitant]
     Active Substance: ATORVASTATIN
  9. ERBITUX [Concomitant]
     Active Substance: CETUXIMAB
     Dosage: 500 MG/M2

REACTIONS (2)
  - Prinzmetal angina [Recovered/Resolved]
  - Chest pain [Recovered/Resolved]

NARRATIVE: CASE EVENT DATE: 20151016
